FAERS Safety Report 21844668 (Version 2)
Quarter: 2023Q2

REPORT INFORMATION
  Report Type: Report from Study
  Country: US (occurrence: US)
  Receive Date: 20230110
  Receipt Date: 20230405
  Transmission Date: 20230721
  Serious: No
  Sender: FDA-Public Use
  Company Number: US-AGIOS-2212US03228

PATIENT
  Sex: Female

DRUGS (1)
  1. MITAPIVAT [Suspect]
     Active Substance: MITAPIVAT
     Indication: Haemolytic anaemia enzyme specific
     Dosage: 20 MILLIGRAM
     Route: 048
     Dates: start: 20221216

REACTIONS (2)
  - Haemoglobin decreased [Unknown]
  - Stress [Unknown]
